FAERS Safety Report 8736377 (Version 2)
Quarter: 2012Q4

REPORT INFORMATION
  Report Type: Report from Study
  Country: US (occurrence: US)
  Receive Date: 20120822
  Receipt Date: 20120907
  Transmission Date: 20130627
  Serious: Yes (Other)
  Sender: FDA-Public Use
  Company Number: US-CELGENEUS-163-C5013-12081818

PATIENT
  Age: 76 Year
  Sex: Male
  Weight: 74.91 kg

DRUGS (1)
  1. LENALIDOMIDE [Suspect]
     Indication: CLL
     Dosage: 2.5 Milligram
     Route: 048
     Dates: start: 20091027, end: 20100216

REACTIONS (4)
  - Adenocarcinoma of colon [Not Recovered/Not Resolved]
  - Chronic lymphocytic leukaemia [None]
  - Malignant neoplasm progression [None]
  - Second primary malignancy [None]
